FAERS Safety Report 18032742 (Version 1)
Quarter: 2020Q3

REPORT INFORMATION
  Report Type: Spontaneous
  Country: DE (occurrence: DE)
  Receive Date: 20200716
  Receipt Date: 20200716
  Transmission Date: 20201103
  Serious: Yes (Congenital Anomaly)
  Sender: FDA-Public Use
  Company Number: DE-TEVA-2020-DE-1798805

PATIENT
  Sex: Male
  Weight: 3.55 kg

DRUGS (5)
  1. PREDNISOLON [Suspect]
     Active Substance: PREDNISOLONE
     Indication: MENSTRUATION IRREGULAR
     Dosage: 6 [MG/D (2?0?4 MG)]
     Route: 064
  2. L?THYROXIN [Concomitant]
     Active Substance: LEVOTHYROXINE SODIUM
     Indication: HYPOTHYROIDISM
     Dosage: 50 MICROGRAM DAILY;
     Route: 064
     Dates: start: 20190512, end: 20200210
  3. OFTAQUIX 5 MG/ML AUGENTROPFEN [Concomitant]
     Indication: CONJUNCTIVITIS
     Route: 064
  4. METFORMIN [Suspect]
     Active Substance: METFORMIN HYDROCHLORIDE
     Indication: POLYCYSTIC OVARIES
     Dosage: 850 MILLIGRAM DAILY;
     Route: 064
  5. VIGANTOLETTEN 1000 [Concomitant]
     Indication: PROPHYLAXIS
     Dosage: 1000 IU (INTERNATIONAL UNIT) DAILY;
     Route: 064
     Dates: start: 20190512, end: 20190618

REACTIONS (2)
  - Cleft lip and palate [Not Recovered/Not Resolved]
  - Foetal exposure during pregnancy [Unknown]
